FAERS Safety Report 5865886-2 (Version None)
Quarter: 2008Q3

REPORT INFORMATION
  Report Type: 
  Country: None (occurrence: None)
  Receive Date: 20080829
  Receipt Date: 20080821
  Transmission Date: 20090109
  Serious: Yes (Hospitalization, Other)
  Sender: FDA-Public Use
  Company Number: US-PFIZER INC-2007046180

PATIENT
  Sex: Female

DRUGS (2)
  1. BEXTRA [Suspect]
     Indication: ARTHRITIS
  2. BEXTRA [Suspect]
     Indication: OSTEOARTHRITIS

REACTIONS (3)
  - CARDIAC DISORDER [None]
  - RENAL FAILURE [None]
  - STEVENS-JOHNSON SYNDROME [None]
